FAERS Safety Report 25422011 (Version 1)
Quarter: 2025Q2

REPORT INFORMATION
  Report Type: Report from Study
  Country: US (occurrence: US)
  Receive Date: 20250611
  Receipt Date: 20250611
  Transmission Date: 20250717
  Serious: Yes (Hospitalization, Other)
  Sender: GILEAD
  Company Number: US-GILEAD-2025-0715868

PATIENT
  Age: 56 Year
  Sex: Female
  Weight: 111.6 kg

DRUGS (43)
  1. AMBRISENTAN [Suspect]
     Active Substance: AMBRISENTAN
     Indication: Pulmonary hypertension
     Route: 065
  2. REMODULIN [Suspect]
     Active Substance: TREPROSTINIL
     Indication: Pulmonary arterial hypertension
     Route: 058
  3. REMODULIN [Suspect]
     Active Substance: TREPROSTINIL
     Route: 058
  4. REMODULIN [Suspect]
     Active Substance: TREPROSTINIL
     Route: 058
     Dates: start: 20230411
  5. CARAFATE [Concomitant]
     Active Substance: SUCRALFATE
  6. FUROSEMIDE [Concomitant]
     Active Substance: FUROSEMIDE
  7. ADEMPAS [Concomitant]
     Active Substance: RIOCIGUAT
  8. FAMOTIDINE [Concomitant]
     Active Substance: FAMOTIDINE
  9. OMEPRAZOLE [Concomitant]
     Active Substance: OMEPRAZOLE
  10. CLARITIN [Concomitant]
     Active Substance: LORATADINE
  11. ACETAMINOPHEN\CODEINE PHOSPHATE [Concomitant]
     Active Substance: ACETAMINOPHEN\CODEINE PHOSPHATE
  12. VITAMIN D3 [Concomitant]
     Active Substance: CHOLECALCIFEROL
  13. IMODIUM A-D [Concomitant]
     Active Substance: LOPERAMIDE HYDROCHLORIDE
  14. TRAZODONE HCL [Concomitant]
     Active Substance: TRAZODONE HYDROCHLORIDE
  15. FOLIC ACID [Concomitant]
     Active Substance: FOLIC ACID
  16. SPIRIVA [Concomitant]
     Active Substance: TIOTROPIUM BROMIDE MONOHYDRATE
  17. DULOXETINE HYDROCHLORIDE [Concomitant]
     Active Substance: DULOXETINE HYDROCHLORIDE
  18. CYANOCOBALAMIN [Concomitant]
     Active Substance: CYANOCOBALAMIN
  19. POTASSIUM CHLORIDE [Concomitant]
     Active Substance: POTASSIUM CHLORIDE
  20. ALBUTEROL SULFATE [Concomitant]
     Active Substance: ALBUTEROL SULFATE
  21. ELIQUIS [Concomitant]
     Active Substance: APIXABAN
  22. ATORVASTATIN CALCIUM [Concomitant]
     Active Substance: ATORVASTATIN CALCIUM
  23. AZELASTINE HYDROCHLORIDE [Concomitant]
     Active Substance: AZELASTINE HYDROCHLORIDE
  24. SOTATERCEPT [Concomitant]
     Active Substance: SOTATERCEPT
     Indication: Pulmonary hypertension
     Dates: start: 20250328
  25. LACTOSE [Concomitant]
     Active Substance: LACTOSE
  26. XANAX [Concomitant]
     Active Substance: ALPRAZOLAM
  27. METFORMIN HYDROCHLORIDE [Concomitant]
     Active Substance: METFORMIN HYDROCHLORIDE
  28. OXYGEN [Concomitant]
     Active Substance: OXYGEN
  29. SITAGLIPTIN [Concomitant]
     Active Substance: SITAGLIPTIN
  30. LANTUS [Concomitant]
     Active Substance: INSULIN GLARGINE
  31. DILTIAZEM HYDROCHLORIDE [Concomitant]
     Active Substance: DILTIAZEM HYDROCHLORIDE
  32. MONTELUKAST SODIUM [Concomitant]
     Active Substance: MONTELUKAST SODIUM
  33. FARXIGA [Concomitant]
     Active Substance: DAPAGLIFLOZIN PROPANEDIOL
  34. DICYCLOMINE HYDROCHLORIDE [Concomitant]
     Active Substance: DICYCLOMINE HYDROCHLORIDE
  35. CETIRIZINE HCL [Concomitant]
     Active Substance: CETIRIZINE HYDROCHLORIDE
  36. ONDANSETRON HYDROCHLORIDE [Concomitant]
     Active Substance: ONDANSETRON HYDROCHLORIDE
  37. TYLENOL [Concomitant]
     Active Substance: ACETAMINOPHEN
  38. SYMBICORT [Concomitant]
     Active Substance: BUDESONIDE\FORMOTEROL FUMARATE DIHYDRATE
  39. OMEPRAZOLE [Concomitant]
     Active Substance: OMEPRAZOLE
  40. FLUTICASONE PROPIONATE [Concomitant]
     Active Substance: FLUTICASONE PROPIONATE
  41. JANUVIA [Concomitant]
     Active Substance: SITAGLIPTIN PHOSPHATE
  42. CEPHALEXIN MONOHYDRATE [Concomitant]
     Active Substance: CEPHALEXIN MONOHYDRATE
  43. PREDNISONE [Concomitant]
     Active Substance: PREDNISONE

REACTIONS (13)
  - Cardiac disorder [Unknown]
  - Supraventricular tachycardia [Not Recovered/Not Resolved]
  - Oxygen saturation decreased [Not Recovered/Not Resolved]
  - Respiratory symptom [Unknown]
  - Blood potassium decreased [Unknown]
  - Dehydration [Unknown]
  - Human rhinovirus test positive [Unknown]
  - Atrial fibrillation [Unknown]
  - Pain in extremity [Recovered/Resolved]
  - Back pain [Recovered/Resolved]
  - Pain [Recovered/Resolved]
  - Headache [Recovered/Resolved]
  - Product dose omission issue [Unknown]

NARRATIVE: CASE EVENT DATE: 20241214
